FAERS Safety Report 5341445-5 (Version None)
Quarter: 2007Q2

REPORT INFORMATION
  Report Type: 
  Country: None (occurrence: None)
  Receive Date: 20070530
  Receipt Date: 20070530
  Transmission Date: 20071010
  Serious: Yes (Hospitalization)
  Sender: FDA-Public Use
  Company Number: None

PATIENT
  Age: 81 Year
  Sex: Male
  Weight: 97.5234 kg

DRUGS (5)
  1. NAPROXEN [Suspect]
     Indication: ARTHRALGIA
     Dosage: 250 MG BID ORAL
     Route: 048
     Dates: start: 20060904, end: 20061011
  2. FUROSEMIDE [Suspect]
     Indication: HYPERTENSION
     Dosage: 40 MG DAILY ORAL
     Route: 048
     Dates: end: 20061011
  3. LISINOPRIL [Suspect]
     Dosage: 5 MG DAILY ORAL
     Route: 048
     Dates: end: 20061012
  4. NORVASC [Concomitant]
  5. ASPIRIN [Concomitant]

REACTIONS (2)
  - ABDOMINAL PAIN LOWER [None]
  - ABDOMINAL PAIN UPPER [None]
